FAERS Safety Report 19774637 (Version 2)
Quarter: 2021Q3

REPORT INFORMATION
  Report Type: Spontaneous
  Country: AU (occurrence: AU)
  Receive Date: 20210901
  Receipt Date: 20210917
  Transmission Date: 20211014
  Serious: Yes (Hospitalization)
  Sender: FDA-Public Use
  Company Number: AU-009507513-2108AUS007885

PATIENT
  Age: 55 Year
  Sex: Female
  Weight: 80.3 kg

DRUGS (16)
  1. ENDONE [Concomitant]
     Active Substance: OXYCODONE HYDROCHLORIDE
     Indication: HEADACHE
     Dosage: 5 MILLIGRAM; QID, PRN (FOUR TIMES A DAY, AS NEEDED)
     Route: 048
     Dates: start: 202012
  2. ONDANSETRON [Concomitant]
     Active Substance: ONDANSETRON
     Indication: NAUSEA
     Dosage: 4 MILLIGRAM, PRN
     Route: 048
     Dates: start: 202107
  3. OXYCONTIN [Concomitant]
     Active Substance: OXYCODONE HYDROCHLORIDE
     Indication: HEADACHE
     Dosage: 10 MILLIGRAM, BID
     Route: 048
     Dates: start: 202101
  4. PEMBROLIZUMAB. [Suspect]
     Active Substance: PEMBROLIZUMAB
     Dosage: 200 MILLIGRAM, Q3W (ONCE ON DAY 1 OF EACH 21?DAY CYCLE)
     Route: 042
     Dates: start: 20210823, end: 20210823
  5. DEXAMETHASONE. [Concomitant]
     Active Substance: DEXAMETHASONE
     Indication: HEADACHE
     Dosage: 2 MILLIGRAM, QAM
     Route: 048
     Dates: start: 202012, end: 20210830
  6. PEMBROLIZUMAB. [Suspect]
     Active Substance: PEMBROLIZUMAB
     Indication: NEOPLASM
     Dosage: 200 MILLIGRAM, Q3W (ONCE ON DAY 1 OF EACH 21?DAY CYCLE)
     Route: 042
     Dates: start: 20210729, end: 20210729
  7. OROXINE [Concomitant]
     Active Substance: LEVOTHYROXINE SODIUM
     Indication: HYPOTHYROIDISM
     Dosage: 75 MILLIGRAM, QD
     Route: 048
     Dates: start: 2020
  8. STEMETIL [PROCHLORPERAZINE MALEATE] [Concomitant]
     Active Substance: PROCHLORPERAZINE MALEATE
     Indication: VOMITING
  9. DIAZEPAM. [Concomitant]
     Active Substance: DIAZEPAM
     Indication: PROPHYLAXIS
     Dosage: 5 MILLIGRAM, PRN
     Route: 048
     Dates: start: 202107
  10. STEMETIL [PROCHLORPERAZINE MALEATE] [Concomitant]
     Active Substance: PROCHLORPERAZINE MALEATE
     Indication: NAUSEA
     Dosage: 5 MILLIGRAM; BID, PRN
     Route: 048
     Dates: start: 202012
  11. MOVICOL PLAIN [Concomitant]
     Active Substance: POLYETHYLENE GLYCOL 3350\POTASSIUM CHLORIDE\SODIUM BICARBONATE\SODIUM CHLORIDE
     Indication: CONSTIPATION PROPHYLAXIS
     Dosage: 2 TABLETS, PRN
     Route: 048
     Dates: start: 202012
  12. PANTOPRAZOLE [Concomitant]
     Active Substance: PANTOPRAZOLE
     Indication: REFLUX GASTRITIS
     Dosage: 40 MILLIGRAM, QAM
     Route: 048
     Dates: start: 202101
  13. ONDANSETRON [Concomitant]
     Active Substance: ONDANSETRON
     Indication: VOMITING
  14. ESTRADIOL. [Concomitant]
     Active Substance: ESTRADIOL
     Indication: HOT FLUSH
     Dosage: 0.19 FEW MLS, THREE TIMES A DAY
     Route: 061
     Dates: start: 2013
  15. COLOXYL WITH SENNA [DOCUSATE SODIUM;SENNOSIDE A+B] [Concomitant]
     Active Substance: DOCUSATE SODIUM\SENNOSIDES A AND B
     Indication: CONSTIPATION PROPHYLAXIS
     Dosage: 2 TABLETS, PRN
     Route: 048
     Dates: start: 202012
  16. TOPIRAMATE. [Concomitant]
     Active Substance: TOPIRAMATE
     Indication: SEIZURE PROPHYLAXIS
     Dosage: 100 MILLIGRAM, BID
     Route: 048
     Dates: start: 202010

REACTIONS (2)
  - Troponin increased [Recovered/Resolved]
  - Troponin increased [Unknown]

NARRATIVE: CASE EVENT DATE: 202108
